FAERS Safety Report 6026115-2 (Version None)
Quarter: 2009Q1

REPORT INFORMATION
  Report Type: 
  Country: None (occurrence: None)
  Receive Date: 20090102
  Receipt Date: 20081226
  Transmission Date: 20090719
  Serious: Yes (Other)
  Sender: FDA-Public Use
  Company Number: JP-ROCHE-605414

PATIENT
  Age: 7 Year
  Sex: Female

DRUGS (1)
  1. TAMIFLU [Suspect]
     Indication: INFLUENZA
     Dosage: DRUG NAME: TAMIFLU DRY SYRUP 3%
     Route: 048
     Dates: start: 20081220, end: 20081220

REACTIONS (1)
  - HALLUCINATION [None]
